FAERS Safety Report 18363490 (Version 2)
Quarter: 2020Q4

REPORT INFORMATION
  Report Type: Spontaneous
  Country: JP (occurrence: JP)
  Receive Date: 20201008
  Receipt Date: 20201209
  Transmission Date: 20210114
  Serious: Yes (Death, Hospitalization, Other)
  Sender: FDA-Public Use
  Company Number: JP-INCYTE CORPORATION-2020IN009619

PATIENT

DRUGS (1)
  1. JAKAVI [Suspect]
     Active Substance: RUXOLITINIB
     Indication: MYELOFIBROSIS
     Dosage: UNK
     Route: 048
     Dates: end: 20200731

REACTIONS (5)
  - Myelofibrosis [Fatal]
  - Encephalopathy [Unknown]
  - General physical health deterioration [Fatal]
  - Pneumonia aspiration [Unknown]
  - Heat illness [Unknown]

NARRATIVE: CASE EVENT DATE: 20200801
